FAERS Safety Report 21226740 (Version 1)
Quarter: 2022Q3

REPORT INFORMATION
  Report Type: Other
  Country: None (occurrence: US)
  Receive Date: 20220818
  Receipt Date: 20220818
  Transmission Date: 20221027
  Serious: No
  Sender: FDA-Public Use
  Company Number: US-Ascent Pharmaceuticals, Inc.-2131996

PATIENT

DRUGS (1)
  1. DEXTROAMPHET SACCHARAT, AMPHET ASPARTATE, DEXTROAMPHET SULFATE AND AMP [Suspect]
     Active Substance: AMPHETAMINE ASPARTATE\AMPHETAMINE SULFATE\DEXTROAMPHETAMINE SACCHARATE\DEXTROAMPHETAMINE SULFATE
     Indication: Product used for unknown indication
     Route: 048

REACTIONS (10)
  - Lethargy [Unknown]
  - Fatigue [Unknown]
  - Memory impairment [Unknown]
  - Abdominal pain [Unknown]
  - Headache [Unknown]
  - Affect lability [Unknown]
  - Anxiety [Unknown]
  - Abdominal distension [Unknown]
  - Dizziness [Unknown]
  - Product substitution issue [Unknown]
